FAERS Safety Report 4967964-9 (Version None)
Quarter: 2006Q1

REPORT INFORMATION
  Report Type: 
  Country: None (occurrence: None)
  Receive Date: 20060201
  Receipt Date: 20051219
  Transmission Date: 20060701
  Serious: No
  Sender: FDA-Public Use
  Company Number: 2005PV006063

PATIENT
  Age: 82 Year
  Sex: Male
  Weight: 82.5547 kg

DRUGS (6)
  1. BYETTA [Suspect]
     Indication: DIABETES MELLITUS NON-INSULIN-DEPENDENT
     Dosage: 5 MCG;BID;SC
     Route: 058
     Dates: start: 20051217
  2. LANTUS [Concomitant]
  3. GLIPIZIDE [Concomitant]
  4. LEVOXYL [Concomitant]
  5. LISINOPRIL [Concomitant]
  6. LYRICA [Concomitant]

REACTIONS (1)
  - BLOOD GLUCOSE INCREASED [None]
